FAERS Safety Report 16490005 (Version 1)
Quarter: 2019Q2

REPORT INFORMATION
  Report Type: Spontaneous
  Country: US (occurrence: US)
  Receive Date: 20190628
  Receipt Date: 20190628
  Transmission Date: 20190711
  Serious: No
  Sender: FDA-Public Use
  Company Number: US-ACCORD-090645

PATIENT
  Sex: Female
  Weight: 84.82 kg

DRUGS (2)
  1. CLONAZEPAM. [Suspect]
     Active Substance: CLONAZEPAM
     Indication: PANIC DISORDER
     Dosage: 1 MG 3 TIMES A DAY
     Dates: start: 201809
  2. VENLAFAXINE [Concomitant]
     Active Substance: VENLAFAXINE HYDROCHLORIDE

REACTIONS (4)
  - Drug ineffective [Unknown]
  - Anxiety [Not Recovered/Not Resolved]
  - Product substitution issue [Unknown]
  - Withdrawal syndrome [Not Recovered/Not Resolved]
